FAERS Safety Report 4707792-2 (Version None)
Quarter: 2005Q2

REPORT INFORMATION
  Report Type: 
  Country: None (occurrence: None)
  Receive Date: 20050629
  Receipt Date: 20050303
  Transmission Date: 20051028
  Serious: No
  Sender: FDA-Public Use
  Company Number: 05P-163-0292733-00

PATIENT
  Age: 65 Year
  Sex: Female
  Weight: 58.0604 kg

DRUGS (11)
  1. HUMIRA [Suspect]
     Indication: RHEUMATOID ARTHRITIS
     Dosage: 40 MG, 1 IN 2 D, SUBCUTANEOUS
     Route: 058
     Dates: start: 20050201
  2. PREDNISONE TAB [Concomitant]
  3. METHOTREXATE SODIUM [Concomitant]
  4. CELECOXIB [Concomitant]
  5. ALENDRONATE SODIUM [Concomitant]
  6. SULFASALAZINE [Concomitant]
  7. METOPROLOL TARTRATE [Concomitant]
  8. FOLGARD [Concomitant]
  9. PYRIDOXINE HYDROCHLORIDE [Concomitant]
  10. ASCORBIC ACID [Concomitant]
  11. CALCIUM CITRATE WITH VITAMIN D [Concomitant]

REACTIONS (2)
  - INJECTION SITE HAEMORRHAGE [None]
  - INJECTION SITE IRRITATION [None]
